FAERS Safety Report 18394696 (Version 3)
Quarter: 2022Q3

REPORT INFORMATION
  Report Type: Spontaneous
  Country: US (occurrence: US)
  Receive Date: 20201016
  Receipt Date: 20220714
  Transmission Date: 20221027
  Serious: Yes (Hospitalization)
  Sender: FDA-Public Use
  Company Number: US-ELI_LILLY_AND_COMPANY-US202010002689

PATIENT
  Age: 69 Year
  Sex: Female
  Weight: 49 kg

DRUGS (4)
  1. EMGALITY [Suspect]
     Active Substance: GALCANEZUMAB-GNLM
     Indication: Migraine with aura
     Dosage: 120 MG, MONTHLY (1/M)
     Route: 058
     Dates: start: 202002
  2. EMGALITY [Suspect]
     Active Substance: GALCANEZUMAB-GNLM
     Dosage: UNK, UNKNOWN
     Route: 058
     Dates: start: 202112
  3. EMGALITY [Suspect]
     Active Substance: GALCANEZUMAB-GNLM
     Dosage: UNK, UNKNOWN
     Route: 058
  4. RIZATRIPTAN [Concomitant]
     Active Substance: RIZATRIPTAN
     Indication: Product used for unknown indication
     Dosage: UNK, UNKNOWN
     Route: 065

REACTIONS (3)
  - Myocardial infarction [Recovered/Resolved]
  - Injection site pain [Unknown]
  - Accidental underdose [Unknown]

NARRATIVE: CASE EVENT DATE: 20200812
